FAERS Safety Report 12207640 (Version 1)
Quarter: 2016Q1

REPORT INFORMATION
  Report Type: Report from Study
  Country: US (occurrence: US)
  Receive Date: 20160324
  Receipt Date: 20160324
  Transmission Date: 20160526
  Serious: Yes (Hospitalization, Other)
  Sender: FDA-Public Use
  Company Number: US-GILEAD-2016-0197845

PATIENT
  Age: 39 Year
  Sex: Female
  Weight: 143.31 kg

DRUGS (1)
  1. AMBRISENTAN [Suspect]
     Active Substance: AMBRISENTAN
     Indication: PULMONARY ARTERIAL HYPERTENSION
     Dosage: 5 MG, UNK
     Route: 065
     Dates: start: 20141126

REACTIONS (4)
  - Condition aggravated [Unknown]
  - Fluid overload [Unknown]
  - Treatment noncompliance [Unknown]
  - Cardiac failure [Unknown]
